FAERS Safety Report 17296422 (Version 1)
Quarter: 2020Q1

REPORT INFORMATION
  Report Type: Spontaneous
  Country: FI (occurrence: FI)
  Receive Date: 20200121
  Receipt Date: 20200121
  Transmission Date: 20200409
  Serious: Yes (Life-Threatening)
  Sender: FDA-Public Use
  Company Number: FI-MYLANLABS-2020M1004954

PATIENT
  Age: 48 Year
  Sex: Female

DRUGS (15)
  1. XYLOCAIN                           /00033402/ [Concomitant]
     Dosage: UNK
     Dates: start: 20190923
  2. DEXAMETASON                        /00016001/ [Concomitant]
     Active Substance: DEXAMETHASONE
     Dosage: UNK UNK, PRN
     Dates: start: 20190320
  3. DUROGESIC [Concomitant]
     Active Substance: FENTANYL
     Dosage: UNK
     Dates: start: 20190905
  4. CAPECITABINE ORION [Concomitant]
     Dosage: UNK
     Dates: start: 20190911
  5. ABSTRAL [Concomitant]
     Active Substance: FENTANYL CITRATE
     Dosage: 900 MICROGRAM, PRN
     Dates: start: 20190925
  6. VI-SIBLIN                          /00029101/ [Concomitant]
     Dosage: UNK UNK, PRN
     Dates: start: 20190304
  7. PRIMPERAN [Concomitant]
     Active Substance: METOCLOPRAMIDE HYDROCHLORIDE
     Dosage: UNK UNK, PRN
     Dates: start: 20190320
  8. OPAMOX [Concomitant]
     Active Substance: OXAZEPAM
     Dosage: UNK UNK, PRN
     Dates: start: 20190925
  9. OXALIPLATIN. [Suspect]
     Active Substance: OXALIPLATIN
     Indication: NEOPLASM MALIGNANT
     Dosage: 190 MILLIGRAM(190,MG,X1 )
     Route: 042
     Dates: start: 20191015, end: 20191015
  10. PEGORION [Concomitant]
     Active Substance: POLYETHYLENE GLYCOL 4000
     Dosage: UNK UNK, PRN
     Dates: start: 20190311
  11. CANDESARTAN ACTAVIS [Concomitant]
     Active Substance: CANDESARTAN
     Dosage: 8 MILLIGRAM, QD
     Dates: start: 20190905
  12. OXYNORM [Concomitant]
     Active Substance: OXYCODONE HYDROCHLORIDE
     Dosage: UNK UNK, PRN
     Dates: start: 20190823
  13. AMLODIPIN ORION                    /00972402/ [Concomitant]
     Dosage: 10 MILLIGRAM, QD
     Dates: start: 20190513
  14. PANADOL FORTE                      /00020001/ [Concomitant]
     Active Substance: ACETAMINOPHEN
     Dosage: UNK
     Dates: start: 20170922
  15. GRANISETRON STADA [Concomitant]
     Dosage: UNK UNK, PRN
     Dates: start: 20190320

REACTIONS (5)
  - Blood pressure decreased [Recovered/Resolved]
  - Erythema [Recovered/Resolved]
  - Chest discomfort [Recovered/Resolved]
  - Palpitations [Recovered/Resolved]
  - Hyperhidrosis [Recovered/Resolved]

NARRATIVE: CASE EVENT DATE: 20191015
